FAERS Safety Report 9335883 (Version 1)
Quarter: 2013Q2

REPORT INFORMATION
  Report Type: Report from Study
  Country: CN (occurrence: CN)
  Receive Date: 20130607
  Receipt Date: 20130607
  Transmission Date: 20140414
  Serious: Yes (Other)
  Sender: FDA-Public Use
  Company Number: CN-ROCHE-1231673

PATIENT
  Sex: 0

DRUGS (7)
  1. PEG-INTERFERON ALFA 2A [Suspect]
     Indication: HEPATITIS C
     Route: 058
  2. PEG-INTERFERON ALFA 2A [Suspect]
     Route: 058
  3. MYCOPHENOLATE MOFETIL [Suspect]
     Indication: IMMUNOSUPPRESSION
     Route: 065
  4. TACROLIMUS [Suspect]
     Indication: IMMUNOSUPPRESSION
     Route: 065
  5. CICLOSPORIN A [Suspect]
     Indication: IMMUNOSUPPRESSION
     Route: 065
  6. PREDNISONE [Suspect]
     Indication: IMMUNOSUPPRESSION
     Route: 065
  7. RIBAVIRIN [Concomitant]
     Indication: HEPATITIS C
     Dosage: IN THREE DIVIDED DOSES FOR 48 WEEKS
     Route: 048

REACTIONS (3)
  - Granulocytopenia [Recovering/Resolving]
  - Pyrexia [Recovering/Resolving]
  - Hepatitis C [Recovering/Resolving]
